FAERS Safety Report 10236141 (Version 1)
Quarter: 2014Q2

REPORT INFORMATION
  Report Type: Spontaneous
  Country: CA (occurrence: CA)
  Receive Date: 20140613
  Receipt Date: 20140613
  Transmission Date: 20141212
  Serious: Yes (Other)
  Sender: FDA-Public Use
  Company Number: CA-WATSON-2014-13253

PATIENT
  Age: 11 Year
  Sex: Male

DRUGS (3)
  1. CLONIDINE (UNKNOWN) [Suspect]
     Indication: TIC
     Dosage: 0.025 MG, QPM; TITRATED TO 0.05 MG 3 TIMES DAILY OVER A PERIOD OF 3 WEEKS
     Route: 065
  2. CLONIDINE (UNKNOWN) [Suspect]
     Indication: ATTENTION DEFICIT/HYPERACTIVITY DISORDER
  3. METHYLPHENIDATE [Concomitant]
     Indication: ATTENTION DEFICIT/HYPERACTIVITY DISORDER
     Dosage: 54 MG, UNK
     Route: 065

REACTIONS (2)
  - Somnolence [Unknown]
  - Dizziness [Unknown]
